FAERS Safety Report 6712514-X (Version None)
Quarter: 2010Q2

REPORT INFORMATION
  Report Type: 
  Country: None (occurrence: None)
  Receive Date: 20100505
  Receipt Date: 20100505
  Transmission Date: 20101027
  Serious: Yes (Other)
  Sender: FDA-Public Use
  Company Number: None

PATIENT
  Age: 61 Year
  Sex: Female
  Weight: 50.3493 kg

DRUGS (3)
  1. STRATTERA [Suspect]
     Indication: TRAUMATIC BRAIN INJURY
     Dosage: 75 MG DAILY ORAL
     Route: 048
     Dates: start: 20080701
  2. NADOLOL [Concomitant]
  3. CRESTOR [Concomitant]

REACTIONS (4)
  - DECREASED APPETITE [None]
  - DRY MOUTH [None]
  - FOOD CRAVING [None]
  - WEIGHT DECREASED [None]
